FAERS Safety Report 7559119-9 (Version None)
Quarter: 2011Q2

REPORT INFORMATION
  Report Type: 
  Country: None (occurrence: None)
  Receive Date: 20110621
  Receipt Date: 20110318
  Transmission Date: 20111010
  Serious: No
  Sender: FDA-Public Use
  Company Number: US-MYLANLABS-2011S1005916

PATIENT
  Age: 71 Year
  Sex: Female

DRUGS (5)
  1. PLAVIX [Concomitant]
  2. ARIMIDEX [Concomitant]
  3. LIPITOR [Concomitant]
  4. COQ10 [Concomitant]
  5. NIFEDIPINE [Suspect]
     Indication: BLOOD PRESSURE
     Dates: start: 20110201

REACTIONS (2)
  - DRUG INEFFECTIVE [None]
  - BLOOD PRESSURE INCREASED [None]
